FAERS Safety Report 13206091 (Version 1)
Quarter: 2017Q1

REPORT INFORMATION
  Report Type: Spontaneous
  Country: US (occurrence: US)
  Receive Date: 20170208
  Receipt Date: 20170208
  Transmission Date: 20170428
  Serious: No
  Sender: FDA-Public Use
  Company Number: None

PATIENT
  Age: 9 Year
  Sex: Female
  Weight: 23.85 kg

DRUGS (2)
  1. NORDITROPIN [Concomitant]
     Active Substance: SOMATROPIN
  2. TAMIFLU [Suspect]
     Active Substance: OSELTAMIVIR PHOSPHATE
     Indication: ANTIVIRAL PROPHYLAXIS
     Dates: start: 20170207, end: 20170207

REACTIONS (2)
  - Tremor [None]
  - Hallucination [None]

NARRATIVE: CASE EVENT DATE: 20170207
